FAERS Safety Report 23987612 (Version 2)
Quarter: 2024Q3

REPORT INFORMATION
  Report Type: Spontaneous
  Country: PL (occurrence: PL)
  Receive Date: 20240618
  Receipt Date: 20240708
  Transmission Date: 20241016
  Serious: Yes (Hospitalization, Other)
  Sender: BIOGEN
  Company Number: PL-BIOGEN-2024BI01269291

PATIENT
  Sex: Female

DRUGS (4)
  1. SPINRAZA [Suspect]
     Active Substance: NUSINERSEN
     Indication: Spinal muscular atrophy
     Route: 050
     Dates: start: 20240223
  2. SPINRAZA [Suspect]
     Active Substance: NUSINERSEN
     Dosage: MOST RECENT ADMINISTRATION PRIOR TO THE EVENT 24 MAR 2024
     Route: 050
     Dates: start: 20240225
  3. CELESTONE [Concomitant]
     Active Substance: BETAMETHASONE
     Indication: Immature respiratory system
     Route: 050
     Dates: start: 20240325, end: 20240326
  4. FERROUS SULFATE [Concomitant]
     Active Substance: FERROUS SULFATE
     Indication: Product used for unknown indication
     Dosage: 2 AND 3 TRIMESTER
     Route: 050

REACTIONS (8)
  - Fatigue [Unknown]
  - Muscular weakness [Unknown]
  - Dysstasia [Unknown]
  - Gait disturbance [Unknown]
  - Dyspnoea [Unknown]
  - Premature delivery [Recovered/Resolved]
  - Maternal exposure during pregnancy [Recovered/Resolved]
  - Urinary tract infection [Recovered/Resolved]

NARRATIVE: CASE EVENT DATE: 20230101
